FAERS Safety Report 7297377-9 (Version None)
Quarter: 2011Q1

REPORT INFORMATION
  Report Type: 
  Country: None (occurrence: None)
  Receive Date: 20110207
  Receipt Date: 20110128
  Transmission Date: 20110831
  Serious: Yes (Other)
  Sender: FDA-Public Use
  Company Number: 1000018591

PATIENT
  Age: 54 Year
  Sex: Female

DRUGS (4)
  1. SAVELLA [Suspect]
     Indication: FIBROMYALGIA
     Dosage: 100 MG (50 MG, 2 IN 1 D), ORAL
     Route: 048
     Dates: start: 20101201, end: 20110119
  2. SAVELLA [Suspect]
     Indication: FIBROMYALGIA
     Dosage: 50 MG (50 MG, 1 IN 1 D), ORAL
     Route: 048
     Dates: start: 20110120, end: 20110121
  3. KLONOPRIN (CLONAZEPAM) [Suspect]
  4. SAVELLA [Suspect]
     Indication: FIBROMYALGIA
     Dosage: 12.5 MG (12.5 MG, 1 IN 1 D), ORAL
     Route: 048
     Dates: start: 20101201, end: 20101201

REACTIONS (12)
  - DIZZINESS [None]
  - WEIGHT DECREASED [None]
  - HEADACHE [None]
  - CONDITION AGGRAVATED [None]
  - DECREASED APPETITE [None]
  - ABDOMINAL PAIN UPPER [None]
  - SUICIDAL IDEATION [None]
  - TINNITUS [None]
  - NAUSEA [None]
  - INSOMNIA [None]
  - DRUG INTERACTION [None]
  - BLOOD PRESSURE SYSTOLIC INCREASED [None]
